FAERS Safety Report 6946191-X (Version None)
Quarter: 2010Q3

REPORT INFORMATION
  Report Type: 
  Country: None (occurrence: None)
  Receive Date: 20100827
  Receipt Date: 20100819
  Transmission Date: 20110219
  Serious: Yes (Life-Threatening, Hospitalization, Other)
  Sender: FDA-Public Use
  Company Number: US-AMGEN-QUU430057

PATIENT
  Sex: Female

DRUGS (11)
  1. NPLATE [Suspect]
     Indication: IDIOPATHIC THROMBOCYTOPENIC PURPURA
     Dates: start: 20090122, end: 20090724
  2. GABAPENTIN [Concomitant]
  3. CLONIDINE [Concomitant]
  4. PROZAC [Concomitant]
  5. BENADRYL [Concomitant]
  6. METOPROLOL [Concomitant]
  7. PROCARDIA [Concomitant]
  8. ALBUTEROL [Concomitant]
  9. PROVENTIL [Concomitant]
  10. GLUCOPHAGE [Concomitant]
  11. ZANAFLEX [Concomitant]

REACTIONS (10)
  - ACUTE RESPIRATORY DISTRESS SYNDROME [None]
  - CARDIAC FAILURE CONGESTIVE [None]
  - CHEST DISCOMFORT [None]
  - CHRONIC OBSTRUCTIVE PULMONARY DISEASE [None]
  - DYSPNOEA [None]
  - HYPOXIA [None]
  - LEUKOCYTOSIS [None]
  - PNEUMONIA [None]
  - PULMONARY OEDEMA [None]
  - RENAL FAILURE ACUTE [None]
